FAERS Safety Report 19750997 (Version 1)
Quarter: 2021Q3

REPORT INFORMATION
  Report Type: Spontaneous
  Country: US (occurrence: US)
  Receive Date: 20210826
  Receipt Date: 20210826
  Transmission Date: 20211014
  Serious: Yes (Other)
  Sender: FDA-Public Use
  Company Number: US-PFIZER INC-2020266978

PATIENT
  Age: 19 Year
  Sex: Male

DRUGS (1)
  1. XELJANZ XR [Suspect]
     Active Substance: TOFACITINIB CITRATE
     Indication: AXIAL SPONDYLOARTHRITIS
     Dosage: 11 MG

REACTIONS (2)
  - Gastric haemorrhage [Unknown]
  - Off label use [Unknown]
